FAERS Safety Report 9682496 (Version 2)
Quarter: 2016Q1

REPORT INFORMATION
  Report Type: Report from Study
  Country: US (occurrence: US)
  Receive Date: 20131112
  Receipt Date: 20160226
  Transmission Date: 20160526
  Serious: Yes (Other)
  Sender: FDA-Public Use
  Company Number: US-ROCHE-1278989

PATIENT
  Age: 49 Year
  Sex: Female
  Weight: 65.38 kg

DRUGS (36)
  1. XELODA [Suspect]
     Active Substance: CAPECITABINE
     Indication: PRODUCT USED FOR UNKNOWN INDICATION
     Route: 048
     Dates: end: 20110927
  2. ZOMETA [Concomitant]
     Active Substance: ZOLEDRONIC ACID
     Dosage: IN 100 CC NS
     Route: 065
     Dates: start: 20130308, end: 20130308
  3. TYLENOL [Concomitant]
     Active Substance: ACETAMINOPHEN
     Route: 048
     Dates: start: 20121228
  4. CLARITIN [Concomitant]
     Active Substance: LORATADINE
     Route: 065
     Dates: start: 20121227
  5. CLARITIN [Concomitant]
     Active Substance: LORATADINE
     Dosage: 4 DAYS PIOR TO TREATMENT
     Route: 065
     Dates: start: 201301, end: 201301
  6. HERCEPTIN [Suspect]
     Active Substance: TRASTUZUMAB
     Dosage: IN 250 CC NS
     Route: 042
     Dates: start: 20130308
  7. AVASTIN [Suspect]
     Active Substance: BEVACIZUMAB
     Indication: PRODUCT USED FOR UNKNOWN INDICATION
     Route: 042
     Dates: start: 201004, end: 201005
  8. PERJETA [Suspect]
     Active Substance: PERTUZUMAB
     Indication: BREAST CANCER
     Dosage: IN 250 CC NSS
     Route: 041
     Dates: start: 20130118, end: 20130118
  9. PERJETA [Suspect]
     Active Substance: PERTUZUMAB
     Dosage: IN 250 CC NSS
     Route: 041
     Dates: start: 20130208, end: 20130208
  10. ERIBULIN [Concomitant]
     Active Substance: ERIBULIN
  11. CLARITIN [Concomitant]
     Active Substance: LORATADINE
     Dosage: 4 DAYS PIOR TO TREATMENT
     Route: 065
     Dates: start: 201302, end: 201302
  12. HERCEPTIN [Suspect]
     Active Substance: TRASTUZUMAB
     Route: 042
     Dates: start: 201201
  13. ABRAXANE [Concomitant]
     Active Substance: PACLITAXEL
     Route: 065
     Dates: start: 201004, end: 201005
  14. ZOMETA [Concomitant]
     Active Substance: ZOLEDRONIC ACID
     Route: 065
  15. NAVELBINE [Concomitant]
     Active Substance: VINORELBINE TARTRATE
     Dosage: X 1
     Route: 065
  16. TYLENOL [Concomitant]
     Active Substance: ACETAMINOPHEN
     Route: 048
     Dates: start: 20130118, end: 20130118
  17. HERCEPTIN [Suspect]
     Active Substance: TRASTUZUMAB
     Indication: BREAST CANCER
     Route: 042
     Dates: end: 20110927
  18. ZOMETA [Concomitant]
     Active Substance: ZOLEDRONIC ACID
     Dosage: IN 100 CC NS
     Route: 065
     Dates: start: 20130208, end: 20130208
  19. TYLENOL [Concomitant]
     Active Substance: ACETAMINOPHEN
     Route: 048
     Dates: start: 20130208, end: 20130208
  20. CELEBREX [Concomitant]
     Active Substance: CELECOXIB
     Route: 065
  21. EFFEXOR [Concomitant]
     Active Substance: VENLAFAXINE HYDROCHLORIDE
     Route: 048
  22. HERCEPTIN [Suspect]
     Active Substance: TRASTUZUMAB
     Dosage: IN 250 CC NS
     Route: 042
     Dates: start: 20130208
  23. LOVENOX [Concomitant]
     Active Substance: ENOXAPARIN SODIUM
     Route: 065
  24. ZOLPIDEM TARTRATE. [Concomitant]
     Active Substance: ZOLPIDEM TARTRATE
     Route: 065
  25. HERCEPTIN [Suspect]
     Active Substance: TRASTUZUMAB
     Route: 042
     Dates: start: 20121228
  26. PERJETA [Suspect]
     Active Substance: PERTUZUMAB
     Route: 042
  27. NEURONTIN [Concomitant]
     Active Substance: GABAPENTIN
     Dosage: QHS
     Route: 065
  28. TRAZODONE [Concomitant]
     Active Substance: TRAZODONE HYDROCHLORIDE
     Dosage: AT BEDTIME (HS)
     Route: 048
  29. HERCEPTIN [Suspect]
     Active Substance: TRASTUZUMAB
     Dosage: IN 250 CC NS
     Route: 042
     Dates: start: 20130118
  30. HERCEPTIN [Suspect]
     Active Substance: TRASTUZUMAB
     Route: 042
     Dates: start: 200601
  31. PERJETA [Suspect]
     Active Substance: PERTUZUMAB
     Dosage: IN 250 CC NSS
     Route: 041
     Dates: start: 20130308, end: 20130308
  32. BENADRYL [Suspect]
     Active Substance: DIPHENHYDRAMINE HYDROCHLORIDE
     Indication: PRODUCT USED FOR UNKNOWN INDICATION
     Dosage: 25 MG IN NS 50 ML
     Route: 065
     Dates: start: 20121228
  33. TYLENOL [Concomitant]
     Active Substance: ACETAMINOPHEN
     Route: 048
     Dates: start: 20130308, end: 20130308
  34. CLARITIN [Concomitant]
     Active Substance: LORATADINE
     Dosage: 4 DAYS PIOR TO TREATMENT
     Route: 065
     Dates: start: 201303, end: 201303
  35. ZOMETA [Concomitant]
     Active Substance: ZOLEDRONIC ACID
     Dosage: OVER 30 MINUTES?IN 100 CC NS
     Route: 065
     Dates: start: 20130118, end: 20130118
  36. GEMCITABINE HYDROCHLORIDE. [Concomitant]
     Active Substance: GEMCITABINE HYDROCHLORIDE
     Route: 065
     Dates: start: 201007, end: 201106

REACTIONS (15)
  - Dyskinesia [Unknown]
  - Rash vesicular [Recovered/Resolved]
  - Disease recurrence [Unknown]
  - Adverse drug reaction [Unknown]
  - Oropharyngeal pain [Unknown]
  - Feeling jittery [Unknown]
  - Diarrhoea [Unknown]
  - Diarrhoea [Recovered/Resolved]
  - Disease progression [Unknown]
  - Fatigue [Unknown]
  - Bone pain [Unknown]
  - Nasopharyngitis [Unknown]
  - Cardiotoxicity [Unknown]
  - Rhinorrhoea [Unknown]
  - Diarrhoea [Unknown]

NARRATIVE: CASE EVENT DATE: 20121228
